FAERS Safety Report 13880869 (Version 1)
Quarter: 2017Q3

REPORT INFORMATION
  Report Type: Spontaneous
  Country: US (occurrence: US)
  Receive Date: 20170818
  Receipt Date: 20170818
  Transmission Date: 20171127
  Serious: Yes (Hospitalization)
  Sender: FDA-Public Use
  Company Number: US-APOTEX-2017AP016979

PATIENT
  Age: 8 Year
  Sex: Female

DRUGS (3)
  1. VERAPAMIL HYDROCHLORIDE. [Suspect]
     Active Substance: VERAPAMIL HYDROCHLORIDE
     Dosage: 120 MG, QD
     Route: 065
  2. VERAPAMIL HYDROCHLORIDE. [Suspect]
     Active Substance: VERAPAMIL HYDROCHLORIDE
     Indication: VENTRICULAR EXTRASYSTOLES
     Dosage: 40 MG, EVERY 8 HOURS
     Route: 065
  3. VERAPAMIL HYDROCHLORIDE. [Suspect]
     Active Substance: VERAPAMIL HYDROCHLORIDE
     Dosage: 60 MG, EVERY 8 HOURS
     Route: 065

REACTIONS (5)
  - Fatigue [Unknown]
  - Muscle spasms [Unknown]
  - Drug ineffective [Unknown]
  - Feeling hot [Unknown]
  - Muscular weakness [Unknown]
